FAERS Safety Report 9307450 (Version 1)
Quarter: 2013Q2

REPORT INFORMATION
  Report Type: Report from Study
  Country: GB (occurrence: GB)
  Receive Date: 20130524
  Receipt Date: 20130524
  Transmission Date: 20140414
  Serious: Yes (Hospitalization)
  Sender: FDA-Public Use
  Company Number: GB-JNJFOC-20130509640

PATIENT
  Age: 48 Year
  Sex: Female
  Weight: 101 kg

DRUGS (3)
  1. USTEKINUMAB [Suspect]
     Indication: PSORIASIS
     Route: 058
     Dates: start: 20120113
  2. AMLODIPINE [Concomitant]
     Dates: start: 20110712
  3. LOSARTAN [Concomitant]
     Dates: start: 20111109

REACTIONS (1)
  - Intracranial pressure increased [Not Recovered/Not Resolved]
